FAERS Safety Report 9173769 (Version 1)
Quarter: 2013Q1

REPORT INFORMATION
  Report Type: Spontaneous
  Country: RS (occurrence: None)
  Receive Date: 20130318
  Receipt Date: 20130318
  Transmission Date: 20140127
  Serious: Yes (Other)
  Sender: FDA-Public Use
  Company Number: 2013-04465

PATIENT
  Age: 58 Year
  Sex: Female

DRUGS (4)
  1. RANITIDINE [Suspect]
     Dosage: 2 X 1, ORAL
     Route: 048
     Dates: start: 20130101, end: 20130115
  2. DOLQUINE [Concomitant]
  3. SORTIS (ATORVASTATIN CALCIUM) [Concomitant]
  4. EUTHYROX LEVOTHYROXINE SODIUM) [Concomitant]

REACTIONS (6)
  - Drug ineffective [None]
  - Condition aggravated [None]
  - Abdominal pain upper [None]
  - Regurgitation [None]
  - Arthralgia [None]
  - Gastritis [None]
